FAERS Safety Report 20701246 (Version 1)
Quarter: 2022Q2

REPORT INFORMATION
  Report Type: Spontaneous
  Country: US (occurrence: None)
  Receive Date: 20220411
  Receipt Date: 20220411
  Transmission Date: 20220720
  Serious: Yes (Other)
  Sender: FDA-Public Use
  Company Number: None

PATIENT
  Age: 51 Year
  Sex: Female

DRUGS (4)
  1. BOTOX [Suspect]
     Active Substance: ONABOTULINUMTOXINA
     Indication: Migraine without aura
     Dosage: OTHER QUANTITY : 200 UNIT;?OTHER FREQUENCY : EVERY 90 DAYS;?
     Route: 030
     Dates: start: 20210406
  2. BUSPIRONE TAB 5MG [Concomitant]
  3. MAXALT TAB 5MG [Concomitant]
  4. VYVANSE CAP 50MG [Concomitant]

REACTIONS (1)
  - Systemic lupus erythematosus [None]

NARRATIVE: CASE EVENT DATE: 20210701
